FAERS Safety Report 20731237 (Version 2)
Quarter: 2022Q2

REPORT INFORMATION
  Report Type: Spontaneous
  Country: GB (occurrence: GB)
  Receive Date: 20220420
  Receipt Date: 20220502
  Transmission Date: 20220721
  Serious: Yes (Other)
  Sender: FDA-Public Use
  Company Number: GB-Niche Generics-NG202204-000002

PATIENT
  Age: 71 Year
  Sex: Female

DRUGS (2)
  1. MELOXICAM [Suspect]
     Active Substance: MELOXICAM
     Indication: Product used for unknown indication
     Dosage: UNK
  2. MELOXICAM [Suspect]
     Active Substance: MELOXICAM
     Dosage: UNK (7.5 TO 15MG)
     Dates: start: 2018, end: 202009

REACTIONS (1)
  - Pulmonary embolism [Unknown]

NARRATIVE: CASE EVENT DATE: 20200901
